FAERS Safety Report 6525066-4 (Version None)
Quarter: 2010Q1

REPORT INFORMATION
  Report Type: 
  Country: None (occurrence: None)
  Receive Date: 20100104
  Receipt Date: 20091230
  Transmission Date: 20100710
  Serious: Yes (Death, Life-Threatening, Hospitalization)
  Sender: FDA-Public Use
  Company Number: DE-CELGENEUS-062-21880-09120640

PATIENT
  Age: 70 Year
  Sex: Male

DRUGS (7)
  1. REVLIMID [Suspect]
     Indication: ACUTE MYELOID LEUKAEMIA
     Route: 048
     Dates: start: 20091112, end: 20091127
  2. URBASON [Concomitant]
     Indication: RHEUMATOID ARTHRITIS
     Route: 065
  3. TILIDIN/NALOXANE [Concomitant]
     Indication: RHEUMATOID ARTHRITIS
     Route: 065
  4. 5-HYDROXYUREA [Concomitant]
     Indication: THERAPEUTIC PROCEDURE
     Route: 065
  5. PANTOPRAZOLE [Concomitant]
     Indication: PROPHYLAXIS
     Route: 065
  6. GLIMEPIRIDE [Concomitant]
     Indication: DIABETES MELLITUS
     Route: 065
  7. AUGMENTIN [Concomitant]
     Indication: PROPHYLAXIS
     Route: 065

REACTIONS (4)
  - DIARRHOEA [None]
  - FEBRILE NEUTROPENIA [None]
  - RENAL FAILURE [None]
  - SEPTIC SHOCK [None]
